FAERS Safety Report 19138942 (Version 1)
Quarter: 2021Q2

REPORT INFORMATION
  Report Type: Spontaneous
  Country: JP (occurrence: JP)
  Receive Date: 20210415
  Receipt Date: 20210415
  Transmission Date: 20210717
  Serious: Yes (Hospitalization, Other)
  Sender: FDA-Public Use
  Company Number: JP-TEVA-2021-JP-1902277

PATIENT
  Age: 71 Year
  Sex: Male

DRUGS (3)
  1. PREDNISOLONE. [Suspect]
     Active Substance: PREDNISOLONE
     Dosage: 30 MILLIGRAM DAILY;
     Route: 048
  2. PREDNISOLONE. [Suspect]
     Active Substance: PREDNISOLONE
     Indication: MESENTERIC PANNICULITIS
     Dosage: 15 MILLIGRAM DAILY;
     Route: 048
  3. CYCLOSPORIN A [Suspect]
     Active Substance: CYCLOSPORINE
     Indication: MESENTERIC PANNICULITIS
     Dosage: 150 MILLIGRAM DAILY; SCHEDULED FOR 2 MONTHS
     Route: 065

REACTIONS (6)
  - Haemophagocytic lymphohistiocytosis [Recovering/Resolving]
  - Cognitive disorder [Unknown]
  - Pneumonia bacterial [Unknown]
  - Steroid diabetes [Unknown]
  - Mycobacterium avium complex infection [Recovering/Resolving]
  - Escherichia infection [Unknown]
